FAERS Safety Report 11791721 (Version 1)
Quarter: 2015Q4

REPORT INFORMATION
  Report Type: Spontaneous
  Country: FR (occurrence: FR)
  Receive Date: 20151201
  Receipt Date: 20151201
  Transmission Date: 20160305
  Serious: Yes (Other)
  Sender: FDA-Public Use
  Company Number: FR-ACORDA-ACO_119614_2015

PATIENT

DRUGS (2)
  1. QUTENZA [Suspect]
     Active Substance: CAPSAICIN
     Dosage: UNK UNK, UNKNOWN FREQ.
     Route: 065
     Dates: start: 20141211, end: 20141211
  2. QUTENZA [Suspect]
     Active Substance: CAPSAICIN
     Indication: NEURALGIA
     Dosage: UNK UNK, UNKNOWN FREQ.
     Route: 065
     Dates: start: 20140919, end: 20140919

REACTIONS (3)
  - Intentional product misuse [Unknown]
  - Haematoma [Unknown]
  - Thermal burn [Unknown]
